FAERS Safety Report 8377741-7 (Version None)
Quarter: 2012Q2

REPORT INFORMATION
  Report Type: 
  Country: None (occurrence: None)
  Receive Date: 20120522
  Receipt Date: 20120516
  Transmission Date: 20120825
  Serious: Yes (Other)
  Sender: FDA-Public Use
  Company Number: JP-GLAXOSMITHKLINE-B0802175A

PATIENT
  Age: 7 Year
  Sex: Male

DRUGS (4)
  1. IBRUPROFEN [Concomitant]
     Route: 048
  2. RELENZA [Suspect]
     Indication: PRODUCT USED FOR UNKNOWN INDICATION
     Dosage: 10MG PER DAY
     Route: 055
     Dates: start: 20120213
  3. MEIACT [Concomitant]
     Route: 048
  4. ZESULAN [Concomitant]
     Route: 048

REACTIONS (2)
  - HALLUCINATION [None]
  - NIGHTMARE [None]
